FAERS Safety Report 18534167 (Version 3)
Quarter: 2021Q1

REPORT INFORMATION
  Report Type: Spontaneous
  Country: JP (occurrence: JP)
  Receive Date: 20201123
  Receipt Date: 20210323
  Transmission Date: 20210419
  Serious: Yes (Death, Hospitalization, Other)
  Sender: FDA-Public Use
  Company Number: JP-BRISTOL-MYERS SQUIBB COMPANY-BMS-2020-098459

PATIENT
  Age: 71 Year
  Sex: Male
  Weight: 69.8 kg

DRUGS (3)
  1. OPDIVO [Suspect]
     Active Substance: NIVOLUMAB
     Indication: MALIGNANT MELANOMA
     Dosage: 80 MILLIGRAM
     Route: 041
     Dates: start: 20190918, end: 20191121
  2. YERVOY [Suspect]
     Active Substance: IPILIMUMAB
     Indication: MALIGNANT MELANOMA
     Dosage: 197 MILLIGRAM
     Route: 041
     Dates: start: 20190918, end: 20191121
  3. OPDIVO [Suspect]
     Active Substance: NIVOLUMAB
     Dosage: 240 MILLIGRAM
     Route: 041
     Dates: start: 20200116, end: 202003

REACTIONS (4)
  - Malignant neoplasm progression [Fatal]
  - Liver disorder [Recovered/Resolved]
  - Tubulointerstitial nephritis [Unknown]
  - Renal tubular disorder [Recovered/Resolved]

NARRATIVE: CASE EVENT DATE: 20191031
